FAERS Safety Report 7428843-0 (Version None)
Quarter: 2011Q2

REPORT INFORMATION
  Report Type: 
  Country: None (occurrence: None)
  Receive Date: 20110421
  Receipt Date: 20110419
  Transmission Date: 20111010
  Serious: Yes (Death)
  Sender: FDA-Public Use
  Company Number: PHHY2011FR33299

PATIENT
  Sex: Female
  Weight: 3.29 kg

DRUGS (1)
  1. TEGRETOL [Suspect]
     Dosage: MATERNAL DOSE 200 MG THREE TIMES DAILY
     Route: 064

REACTIONS (4)
  - INTRA-UTERINE DEATH [None]
  - ASPHYXIA [None]
  - NEONATAL ASPIRATION [None]
  - DRUG EXPOSURE DURING PREGNANCY [None]
